FAERS Safety Report 8223245-1 (Version None)
Quarter: 2012Q1

REPORT INFORMATION
  Report Type: 
  Country: None (occurrence: None)
  Receive Date: 20120321
  Receipt Date: 20120315
  Transmission Date: 20120608
  Serious: Yes (Other)
  Sender: FDA-Public Use
  Company Number: US-ROCHE-1022320

PATIENT
  Sex: Male
  Weight: 59.02 kg

DRUGS (2)
  1. ACCUTANE [Suspect]
     Indication: ACNE
     Dates: start: 19830101, end: 19840101
  2. ACCUTANE [Suspect]
     Dates: start: 19840101, end: 19850101

REACTIONS (6)
  - DEPRESSION [None]
  - IRRITABLE BOWEL SYNDROME [None]
  - COLITIS ULCERATIVE [None]
  - CROHN'S DISEASE [None]
  - INTESTINAL OBSTRUCTION [None]
  - INFLAMMATORY BOWEL DISEASE [None]
